FAERS Safety Report 24658980 (Version 1)
Quarter: 2024Q4

REPORT INFORMATION
  Report Type: Spontaneous
  Country: US (occurrence: US)
  Receive Date: 20241125
  Receipt Date: 20241125
  Transmission Date: 20250114
  Serious: Yes (Hospitalization, Other)
  Sender: BAYER HEALTHCARE PHARMACEUTICALS INC.
  Company Number: US-BAYER-2024A164730

PATIENT
  Age: 88 Year
  Sex: Male

DRUGS (11)
  1. ADEMPAS [Suspect]
     Active Substance: RIOCIGUAT
     Indication: Pulmonary hypertension
     Dosage: 2 MG, TID
     Route: 048
     Dates: start: 20200420
  2. LASIX [Suspect]
     Active Substance: FUROSEMIDE
  3. PRADAXA [Concomitant]
     Active Substance: DABIGATRAN ETEXILATE MESYLATE
  4. ATORVASTATIN [Concomitant]
     Active Substance: ATORVASTATIN
  5. SPIRONOLACTONE [Concomitant]
     Active Substance: SPIRONOLACTONE
  6. ENTRESTO [Concomitant]
     Active Substance: SACUBITRIL\VALSARTAN
  7. HYDROXYCHLOROQUINE [Concomitant]
     Active Substance: HYDROXYCHLOROQUINE
  8. ALLOPURINOL [Concomitant]
     Active Substance: ALLOPURINOL
  9. FUROSEMIDE [Concomitant]
     Active Substance: FUROSEMIDE
  10. COLCHICINE [Concomitant]
     Active Substance: COLCHICINE
  11. FLUOROURACIL [Concomitant]
     Active Substance: FLUOROURACIL

REACTIONS (6)
  - Hypotension [None]
  - Dizziness [None]
  - Acute kidney injury [None]
  - Blood creatinine increased [None]
  - Diarrhoea [None]
  - Dehydration [None]
